FAERS Safety Report 12422390 (Version 2)
Quarter: 2016Q3

REPORT INFORMATION
  Report Type: Report from Study
  Country: US (occurrence: US)
  Receive Date: 20160601
  Receipt Date: 20160715
  Transmission Date: 20161109
  Serious: Yes (Hospitalization, Other)
  Sender: FDA-Public Use
  Company Number: US-GILEAD-2016-0194346

PATIENT
  Age: 69 Year
  Sex: Female

DRUGS (7)
  1. SPIRIVA [Concomitant]
     Active Substance: TIOTROPIUM BROMIDE MONOHYDRATE
  2. MAGNESIUM OXIDE. [Concomitant]
     Active Substance: MAGNESIUM OXIDE
  3. AMBRISENTAN [Suspect]
     Active Substance: AMBRISENTAN
     Indication: PULMONARY ARTERIAL HYPERTENSION
     Dosage: 10 MG, UNK
     Route: 065
     Dates: start: 20151116
  4. AMIODARONE [Concomitant]
     Active Substance: AMIODARONE
  5. COMADIN [Concomitant]
     Active Substance: CLOTRIMAZOLE
  6. DILTIAZEM. [Concomitant]
     Active Substance: DILTIAZEM
  7. LISINOPRIL. [Concomitant]
     Active Substance: LISINOPRIL

REACTIONS (4)
  - Malaise [Unknown]
  - Anaemia [Unknown]
  - Cor pulmonale [Not Recovered/Not Resolved]
  - Cardiac failure acute [Not Recovered/Not Resolved]
